FAERS Safety Report 22048598 (Version 1)
Quarter: 2023Q1

REPORT INFORMATION
  Report Type: Spontaneous
  Country: NP (occurrence: NP)
  Receive Date: 20230301
  Receipt Date: 20230301
  Transmission Date: 20230418
  Serious: Yes (Death)
  Sender: FDA-Public Use
  Company Number: NP-002147023-NVSC2021NP088225

PATIENT
  Age: 70 Year
  Sex: Female

DRUGS (1)
  1. GLIVEC [Suspect]
     Active Substance: IMATINIB MESYLATE
     Indication: Chronic myeloid leukaemia
     Dosage: 400 MG (4 X 100 MG TABLETS)
     Route: 065

REACTIONS (2)
  - Death [Fatal]
  - Faeces discoloured [Unknown]

NARRATIVE: CASE EVENT DATE: 20221119
